FAERS Safety Report 13030864 (Version 3)
Quarter: 2017Q1

REPORT INFORMATION
  Report Type: Report from Study
  Country: CA (occurrence: CA)
  Receive Date: 20161215
  Receipt Date: 20170207
  Transmission Date: 20170428
  Serious: Yes (Life-Threatening, Hospitalization, Other)
  Sender: FDA-Public Use
  Company Number: CA-TAKEDA-2016TUS019556

PATIENT
  Age: 22 Year
  Sex: Female

DRUGS (3)
  1. IRON [Concomitant]
     Active Substance: IRON
     Dosage: UNK
  2. VITAMIN D [Concomitant]
     Active Substance: CHOLECALCIFEROL
     Dosage: UNK
  3. VEDOLIZUMAB [Suspect]
     Active Substance: VEDOLIZUMAB
     Indication: CROHN^S DISEASE
     Dosage: 300 MG, UNK
     Route: 042
     Dates: start: 20160719, end: 20161003

REACTIONS (11)
  - Septic shock [Unknown]
  - Weight decreased [Unknown]
  - Clostridium difficile infection [Unknown]
  - Abdominal adhesions [Unknown]
  - Volvulus [Unknown]
  - Post procedural complication [Not Recovered/Not Resolved]
  - Intestinal obstruction [Unknown]
  - Asthenia [Unknown]
  - Intestinal resection [Not Recovered/Not Resolved]
  - Peritonitis bacterial [Unknown]
  - Muscle atrophy [Unknown]

NARRATIVE: CASE EVENT DATE: 20161103
